FAERS Safety Report 14111634 (Version 1)
Quarter: 2017Q4

REPORT INFORMATION
  Report Type: Report from Study
  Country: DE (occurrence: DE)
  Receive Date: 20171020
  Receipt Date: 20171020
  Transmission Date: 20180321
  Serious: Yes (Other)
  Sender: FDA-Public Use
  Company Number: DE-BAYER-2016-208550

PATIENT
  Age: 60 Year
  Sex: Female

DRUGS (11)
  1. IBUPROFEN. [Concomitant]
     Active Substance: IBUPROFEN
     Dosage: 1 DF, OM
  2. FURORESE [Concomitant]
     Active Substance: FUROSEMIDE
     Dosage: 1 DF, OM
  3. PHENTANYL [Concomitant]
     Active Substance: FENTANYL
     Dosage: UNK UNK, Q72HR
  4. BETAFERON [Suspect]
     Active Substance: INTERFERON BETA-1B
     Indication: MULTIPLE SCLEROSIS
     Dosage: 250 ?G, QOD
     Route: 058
     Dates: start: 20150427, end: 20171011
  5. BETAFERON [Suspect]
     Active Substance: INTERFERON BETA-1B
     Indication: MULTIPLE SCLEROSIS
     Dosage: UNK
     Dates: start: 20170924
  6. BISOPROLOL [Concomitant]
     Active Substance: BISOPROLOL
     Dosage: UNK - 1.5 DF IN THE MORNING; 1.5 DF IN THE EVENING
  7. JODID [Concomitant]
     Active Substance: IODINE
     Dosage: 1 DF, OM
  8. APIXABAN [Concomitant]
     Active Substance: APIXABAN
     Dosage: UNK
  9. DULCOLAX (DOCUSATE SODIUM) [Concomitant]
     Active Substance: DOCUSATE SODIUM
     Dosage: UNK UNK, BID
  10. BENAZEPRIL [Concomitant]
     Active Substance: BENAZEPRIL HYDROCHLORIDE
     Dosage: 1.5 DF, OM
  11. MAGNESIUM [Concomitant]
     Active Substance: MAGNESIUM
     Dosage: 2 DF, HS

REACTIONS (2)
  - Staphylococcal infection [Not Recovered/Not Resolved]
  - Injection site ulcer [Unknown]

NARRATIVE: CASE EVENT DATE: 20160101
